APPROVED DRUG PRODUCT: ZOLMITRIPTAN
Active Ingredient: ZOLMITRIPTAN
Strength: 5MG
Dosage Form/Route: TABLET;ORAL
Application: A203772 | Product #002
Applicant: MACLEODS PHARMACEUTICALS LTD
Approved: Sep 30, 2015 | RLD: No | RS: No | Type: DISCN